FAERS Safety Report 6016063-6 (Version None)
Quarter: 2008Q4

REPORT INFORMATION
  Report Type: 
  Country: None (occurrence: None)
  Receive Date: 20081222
  Receipt Date: 20081218
  Transmission Date: 20090506
  Serious: Yes (Hospitalization)
  Sender: FDA-Public Use
  Company Number: AT-MERCK-0812AUT00002

PATIENT
  Age: 68 Year
  Sex: Female
  Weight: 96 kg

DRUGS (4)
  1. JANUVIA [Suspect]
     Indication: TYPE 2 DIABETES MELLITUS
     Route: 048
     Dates: start: 20080228, end: 20081101
  2. METFORMIN [Concomitant]
     Indication: TYPE 2 DIABETES MELLITUS
     Route: 065
  3. LANSOPRAZOLE [Concomitant]
     Route: 048
  4. TRAMADOL HYDROCHLORIDE [Concomitant]
     Route: 048

REACTIONS (2)
  - BLOOD GLUCOSE INCREASED [None]
  - TYPE 1 DIABETES MELLITUS [None]
